FAERS Safety Report 7734157-1 (Version None)
Quarter: 2011Q3

REPORT INFORMATION
  Report Type: 
  Country: None (occurrence: None)
  Receive Date: 20110906
  Receipt Date: 20110906
  Transmission Date: 20111222
  Serious: Yes (Hospitalization, Disabling)
  Sender: FDA-Public Use
  Company Number: None

PATIENT
  Age: 46 Year
  Sex: Male
  Weight: 103.8 kg

DRUGS (1)
  1. COLCHICINE [Suspect]
     Dosage: 0.6 MG EVERY DAY PO
     Route: 048
     Dates: start: 20070906, end: 20110602

REACTIONS (1)
  - NEUROPATHY PERIPHERAL [None]
